FAERS Safety Report 5814953-8 (Version None)
Quarter: 2008Q3

REPORT INFORMATION
  Report Type: 
  Country: None (occurrence: None)
  Receive Date: 20080718
  Receipt Date: 20080711
  Transmission Date: 20090109
  Serious: Yes (Other)
  Sender: FDA-Public Use
  Company Number: PHHY2008FR10735

PATIENT
  Sex: Female

DRUGS (4)
  1. EXELON [Suspect]
     Indication: DEMENTIA
     Dosage: 6 MG, BID
     Route: 048
     Dates: start: 20080129, end: 20080609
  2. ARICEPT [Interacting]
     Indication: DEMENTIA
     Dosage: 10 MG/DAY
     Dates: start: 20080326, end: 20080609
  3. AMLOR [Concomitant]
     Dosage: 5 MG, QD
     Route: 048
     Dates: start: 20071209
  4. EXEMESTANE [Concomitant]
     Dosage: 25 MG, QD
     Route: 048
     Dates: start: 20071209

REACTIONS (5)
  - COMA [None]
  - CONFUSIONAL STATE [None]
  - DRUG ADMINISTRATION ERROR [None]
  - DRUG INTERACTION [None]
  - HYPERTENSIVE CRISIS [None]
